FAERS Safety Report 19818851 (Version 1)
Quarter: 2021Q3

REPORT INFORMATION
  Report Type: Spontaneous
  Country: CA (occurrence: CA)
  Receive Date: 20210912
  Receipt Date: 20210912
  Transmission Date: 20211014
  Serious: Yes (Other)
  Sender: FDA-Public Use
  Company Number: CA-TEVA-2021-CA-1951078

PATIENT
  Age: 69 Year
  Sex: Female

DRUGS (17)
  1. DIPHENHYDRAMINE. [Concomitant]
     Active Substance: DIPHENHYDRAMINE
  2. VITAMIN C [Concomitant]
     Active Substance: ASCORBIC ACID
  3. RESTORALAX [Concomitant]
     Active Substance: POLYETHYLENE GLYCOL 3350
  4. CANNABIDIOL [Concomitant]
     Active Substance: CANNABIDIOL
  5. GRANISETRON [Concomitant]
     Active Substance: GRANISETRON
  6. PLACEBO [Concomitant]
     Active Substance: UNSPECIFIED INGREDIENT
  7. RANITIDINE. [Concomitant]
     Active Substance: RANITIDINE
  8. PACLITAXEL FOR INJECTION [Suspect]
     Active Substance: PACLITAXEL
     Route: 065
  9. MAGNESIUM [Concomitant]
     Active Substance: MAGNESIUM
  10. TSR?042 [Concomitant]
     Active Substance: DOSTARLIMAB
  11. TYLENOL WITH CODEINE [Concomitant]
     Active Substance: ACETAMINOPHEN\CODEINE PHOSPHATE
  12. LORAZEPAM. [Concomitant]
     Active Substance: LORAZEPAM
  13. VITAMIN D [Concomitant]
     Active Substance: VITAMIN D NOS
  14. CARBOPLATIN INJECTION ? LIQ IV 10MG/ML [Suspect]
     Active Substance: CARBOPLATIN
     Indication: RECURRENT CANCER
     Route: 065
  15. ACETAMINOPHEN/ACETYLSALICYLIC ACID/CAFFEINE [Concomitant]
     Active Substance: ACETAMINOPHEN\ASPIRIN\CAFFEINE
  16. DEXAMETHASONE. [Concomitant]
     Active Substance: DEXAMETHASONE
     Route: 065
  17. SENOKOT [Concomitant]
     Active Substance: SENNOSIDES

REACTIONS (4)
  - Cough [Recovered/Resolved]
  - Throat tightness [Recovered/Resolved]
  - Erythema [Recovered/Resolved]
  - Flushing [Recovered/Resolved]
